FAERS Safety Report 7424112-3 (Version None)
Quarter: 2011Q2

REPORT INFORMATION
  Report Type: 
  Country: None (occurrence: None)
  Receive Date: 20110419
  Receipt Date: 20101221
  Transmission Date: 20111010
  Serious: Yes (Other)
  Sender: FDA-Public Use
  Company Number: GB-JNJFOC-20110405643

PATIENT
  Age: 81 Year
  Sex: Female

DRUGS (4)
  1. BENDROFLUAZIDE [Concomitant]
     Route: 065
  2. BISOPROLOL [Concomitant]
     Route: 065
  3. BEZAFIBRATE [Concomitant]
     Route: 065
  4. GALANTAMINE HYDROBROMIDE [Suspect]
     Indication: PRODUCT USED FOR UNKNOWN INDICATION
     Route: 065

REACTIONS (3)
  - POOR QUALITY SLEEP [None]
  - AGITATION [None]
  - PSYCHOMOTOR HYPERACTIVITY [None]
